FAERS Safety Report 9257127 (Version 1)
Quarter: 2013Q1

REPORT INFORMATION
  Report Type: Spontaneous
  Country: US (occurrence: None)
  Receive Date: 20121212
  Receipt Date: 20121212
  Transmission Date: 20140127
  Serious: Yes (Hospitalization)
  Sender: FDA-Public Use
  Company Number: 1209USA000167

PATIENT
  Age: 55 Year
  Sex: Female

DRUGS (1)
  1. VICTRELIS [Suspect]
     Indication: CHRONIC HEPATITIS C
     Route: 048
     Dates: start: 20120516

REACTIONS (2)
  - Vomiting [None]
  - Transfusion [None]
